FAERS Safety Report 18770253 (Version 1)
Quarter: 2021Q1

REPORT INFORMATION
  Report Type: Spontaneous
  Country: US (occurrence: US)
  Receive Date: 20210121
  Receipt Date: 20210121
  Transmission Date: 20210419
  Serious: No
  Sender: FDA-Public Use
  Company Number: US-ZOGENIX INTERNATIONAL LIMITED, A WHOLLY OWNED SUBSIDIARY OF ZOGENIX, INC.-2020ZX000150

PATIENT
  Age: 11 Year
  Sex: Male

DRUGS (3)
  1. FINTEPLA [Suspect]
     Active Substance: FENFLURAMINE
     Route: 048
  2. FINTEPLA [Suspect]
     Active Substance: FENFLURAMINE
     Indication: LENNOX-GASTAUT SYNDROME
     Route: 048
     Dates: start: 20200915
  3. FINTEPLA [Suspect]
     Active Substance: FENFLURAMINE
     Route: 048

REACTIONS (3)
  - Insomnia [Recovered/Resolved]
  - Off label use [Unknown]
  - Diarrhoea [Recovering/Resolving]

NARRATIVE: CASE EVENT DATE: 20200915
